FAERS Safety Report 18064165 (Version 1)
Quarter: 2020Q3

REPORT INFORMATION
  Report Type: Report from Study
  Country: MX (occurrence: MX)
  Receive Date: 20200724
  Receipt Date: 20200724
  Transmission Date: 20201103
  Serious: Yes (Death)
  Sender: FDA-Public Use
  Company Number: MX-ASTRAZENECA-2020SE76393

PATIENT
  Age: 75 Year
  Sex: Female
  Weight: 57.5 kg

DRUGS (4)
  1. TAGRISSO [Suspect]
     Active Substance: OSIMERTINIB
     Dosage: ONE DAY YES AND ONE DAY NO UNKNOWN
     Route: 048
  2. TAGRISSO [Suspect]
     Active Substance: OSIMERTINIB
     Dosage: 80.0MG UNKNOWN
     Route: 048
  3. TAGRISSO [Suspect]
     Active Substance: OSIMERTINIB
     Dosage: UNKNOWN DOSE,EVERYDAY UNKNOWN
     Route: 048
  4. TAGRISSO [Suspect]
     Active Substance: OSIMERTINIB
     Dosage: ONE DAY YES AND TWO DAYS NO UNKNOWN
     Route: 048

REACTIONS (6)
  - Headache [Unknown]
  - Vomiting [Unknown]
  - Dizziness [Unknown]
  - Inappropriate schedule of product administration [Unknown]
  - Death [Fatal]
  - Nausea [Unknown]
